FAERS Safety Report 8668315 (Version 3)
Quarter: 2015Q2

REPORT INFORMATION
  Report Type: Report from Study
  Country: US (occurrence: US)
  Receive Date: 20120717
  Receipt Date: 20150629
  Transmission Date: 20150821
  Serious: Yes (Death)
  Sender: FDA-Public Use
  Company Number: US-ROCHE-1087456

PATIENT
  Sex: Female

DRUGS (3)
  1. TETRACAINE [Concomitant]
     Active Substance: TETRACAINE\TETRACAINE HYDROCHLORIDE
  2. LUCENTIS [Suspect]
     Active Substance: RANIBIZUMAB
     Indication: RETINAL OEDEMA
     Route: 050
  3. ZYMAR [Concomitant]
     Active Substance: GATIFLOXACIN

REACTIONS (4)
  - Eye disorder [Unknown]
  - Off label use [Unknown]
  - Death [Fatal]
  - Nasopharyngitis [Unknown]
